FAERS Safety Report 5638762-8 (Version None)
Quarter: 2008Q1

REPORT INFORMATION
  Report Type: 
  Country: None (occurrence: None)
  Receive Date: 20080226
  Receipt Date: 20080214
  Transmission Date: 20080703
  Serious: Yes (Hospitalization)
  Sender: FDA-Public Use
  Company Number: US-JNJFOC-20080204127

PATIENT
  Sex: Male
  Weight: 101.61 kg

DRUGS (15)
  1. IMODIUM [Suspect]
     Indication: DIARRHOEA
     Dosage: AS NECESSARY
     Route: 048
  2. SU011248 [Suspect]
     Route: 048
  3. SU011248 [Suspect]
     Indication: COLON CANCER METASTATIC
     Route: 048
  4. FLUOROURACIL [Suspect]
     Route: 040
  5. FLUOROURACIL [Suspect]
     Indication: COLON CANCER METASTATIC
     Route: 040
  6. LEUCOVORIN CALCIUM [Suspect]
     Indication: COLON CANCER METASTATIC
     Route: 042
  7. OXALIPLATIN [Suspect]
     Indication: COLON CANCER METASTATIC
     Route: 042
  8. ZOFRAN [Concomitant]
     Dosage: AS NEEDED
     Route: 048
  9. COMPAZINE [Concomitant]
     Dosage: AS NEEDED
     Route: 048
  10. FENTANYL [Concomitant]
     Route: 062
  11. REMERON [Concomitant]
     Route: 048
  12. HYDROCODONE BITARTRATE [Concomitant]
     Route: 048
  13. NEXIUM [Concomitant]
     Indication: GASTROOESOPHAGEAL REFLUX DISEASE
     Route: 048
  14. SENOKOT [Concomitant]
     Route: 048
  15. CENTRUM SILVER [Concomitant]
     Route: 048

REACTIONS (2)
  - CONSTIPATION [None]
  - SMALL INTESTINAL OBSTRUCTION [None]
